FAERS Safety Report 23876243 (Version 1)
Quarter: 2024Q2

REPORT INFORMATION
  Report Type: Spontaneous
  Country: US (occurrence: US)
  Receive Date: 20240520
  Receipt Date: 20240520
  Transmission Date: 20240715
  Serious: No
  Sender: FDA-Public Use
  Company Number: US-ALKERMES INC.-ALK-2024-001278

PATIENT
  Age: 44 Year
  Sex: Female
  Weight: 52.154 kg

DRUGS (3)
  1. ARISTADA [Suspect]
     Active Substance: ARIPIPRAZOLE LAUROXIL
     Indication: Gastrointestinal disorder
     Dosage: 662 MILLIGRAM, QMO
     Route: 030
     Dates: start: 202311
  2. BOTOX [Suspect]
     Active Substance: ONABOTULINUMTOXINA
     Indication: Product used for unknown indication
     Dosage: UNK
     Route: 065
  3. LYRICA [Concomitant]
     Active Substance: PREGABALIN
     Indication: Product used for unknown indication
     Dosage: UNK
     Route: 065

REACTIONS (3)
  - Off label use [Not Recovered/Not Resolved]
  - Product administered at inappropriate site [Unknown]
  - Muscle tightness [Unknown]
